FAERS Safety Report 6841504-1 (Version None)
Quarter: 2010Q3

REPORT INFORMATION
  Report Type: 
  Country: None (occurrence: None)
  Receive Date: 20100709
  Receipt Date: 20100628
  Transmission Date: 20110219
  Serious: Yes (Death)
  Sender: FDA-Public Use
  Company Number: 010422

PATIENT
  Sex: Female

DRUGS (1)
  1. CIMZIA [Suspect]
     Indication: CROHN'S DISEASE
     Dosage: ()

REACTIONS (3)
  - IMMUNE SYSTEM DISORDER [None]
  - INTESTINAL MASS [None]
  - LARGE INTESTINE PERFORATION [None]
